FAERS Safety Report 17015171 (Version 1)
Quarter: 2019Q4

REPORT INFORMATION
  Report Type: Spontaneous
  Country: DE (occurrence: DE)
  Receive Date: 20191111
  Receipt Date: 20191111
  Transmission Date: 20200122
  Serious: Yes (Other)
  Sender: FDA-Public Use
  Company Number: DE-ACCORD-160040

PATIENT
  Sex: Male
  Weight: 92 kg

DRUGS (20)
  1. DOXORUBICIN [Suspect]
     Active Substance: DOXORUBICIN
     Indication: DIFFUSE LARGE B-CELL LYMPHOMA
     Route: 065
     Dates: start: 201803, end: 201807
  2. IFOSFAMIDE. [Suspect]
     Active Substance: IFOSFAMIDE
     Indication: DIFFUSE LARGE B-CELL LYMPHOMA
     Dosage: 2ND LINE TREATMENT, ACCORDING TO R-ICE REGIME, 1 CYCLE
     Route: 065
     Dates: start: 201812, end: 201901
  3. PREDNISONE. [Suspect]
     Active Substance: PREDNISONE
     Indication: DIFFUSE LARGE B-CELL LYMPHOMA
     Dosage: 1ST LINE TREATMENT, ACCORDING TO R-CHOP REGIME, 6 CYCLES
     Route: 065
     Dates: start: 201803, end: 201807
  4. MABTHERA [Suspect]
     Active Substance: RITUXIMAB
     Indication: DIFFUSE LARGE B-CELL LYMPHOMA
     Dosage: 3RD LINE TREATMENT, ACCORDING TO R-DHAP REGIME, 2 CYCLES, 5TH LINE TREATMENT,
     Route: 065
     Dates: start: 20190111, end: 20190201
  5. MABTHERA [Suspect]
     Active Substance: RITUXIMAB
     Indication: DIFFUSE LARGE B-CELL LYMPHOMA
     Dosage: 4TH LINE THERAPY, R-GDP REGIME, 1 CYCLE
     Route: 065
     Dates: start: 20190221, end: 201903
  6. CARBOPLATIN. [Suspect]
     Active Substance: CARBOPLATIN
     Indication: DIFFUSE LARGE B-CELL LYMPHOMA
     Dosage: 2ND LINE TREATMENT, ACCORDING TO R-ICE REGIME, 1 CYCLE
     Route: 065
     Dates: start: 201812, end: 201901
  7. LENALIDOMIDE [Suspect]
     Active Substance: LENALIDOMIDE
     Indication: DIFFUSE LARGE B-CELL LYMPHOMA
     Dosage: 5TH LINE TREATMENT, TOGETHER WITH RITUXIMAB AND DEXAMETHASONE, 5 CYCLES
     Route: 065
     Dates: start: 201904, end: 201909
  8. CISPLATIN. [Suspect]
     Active Substance: CISPLATIN
     Indication: DIFFUSE LARGE B-CELL LYMPHOMA
     Dosage: 3RD LINE THERAPY (R-DHAP REGIME, 2 CYCLES)
     Route: 065
     Dates: start: 20190111, end: 20190201
  9. DEXAMETHASONE. [Suspect]
     Active Substance: DEXAMETHASONE
     Indication: DIFFUSE LARGE B-CELL LYMPHOMA
     Dosage: 5TH LINE TREATMENT TOGETHER WITH LENALIDOMIDE AND RITUXIMAB, 5 CYCLES
     Route: 065
     Dates: start: 201904, end: 201909
  10. GEMCITABINE/GEMCITABINE HYDROCHLORIDE [Suspect]
     Active Substance: GEMCITABINE\GEMCITABINE HYDROCHLORIDE
     Indication: DIFFUSE LARGE B-CELL LYMPHOMA
     Route: 065
     Dates: start: 20190221, end: 201903
  11. MABTHERA [Suspect]
     Active Substance: RITUXIMAB
     Indication: DIFFUSE LARGE B-CELL LYMPHOMA
     Dosage: 375 MILLIGRAM/SQ. METER, 1 ST LINE
     Route: 065
     Dates: start: 201803, end: 201807
  12. CYTARABINE/CYTARABINE HYDROCHLORIDE/CYTARABINE OCFOSFATE [Suspect]
     Active Substance: CYTARABINE
     Indication: DIFFUSE LARGE B-CELL LYMPHOMA
     Route: 065
     Dates: start: 20190111, end: 20190201
  13. MABTHERA [Suspect]
     Active Substance: RITUXIMAB
     Indication: DIFFUSE LARGE B-CELL LYMPHOMA
     Dosage: 2ND LINE, R-ICE, 1 CYCLE
     Route: 065
     Dates: start: 201812, end: 201901
  14. CISPLATIN. [Suspect]
     Active Substance: CISPLATIN
     Indication: DIFFUSE LARGE B-CELL LYMPHOMA
     Route: 065
     Dates: start: 20190221, end: 201903
  15. DEXAMETHASONE. [Suspect]
     Active Substance: DEXAMETHASONE
     Indication: DIFFUSE LARGE B-CELL LYMPHOMA
     Dosage: 4TH LINE TREATMENT, ACCORDING TO R-GDP REGIME, 1 CYCLE
     Route: 065
     Dates: start: 20190221, end: 201903
  16. VINCRISTINE [Suspect]
     Active Substance: VINCRISTINE
     Indication: DIFFUSE LARGE B-CELL LYMPHOMA
     Dosage: 1ST LINE TREATMENT, ACCORDING TO R-CHOP REGIME, 6 CYCLES
     Route: 065
     Dates: start: 201803, end: 201807
  17. MABTHERA [Suspect]
     Active Substance: RITUXIMAB
     Indication: DIFFUSE LARGE B-CELL LYMPHOMA
     Dosage: UNK, FIFTH LINE
     Route: 065
     Dates: start: 201904, end: 201909
  18. ETOPOSIDE. [Suspect]
     Active Substance: ETOPOSIDE
     Indication: DIFFUSE LARGE B-CELL LYMPHOMA
     Dosage: 2ND LINE TREATMENT, ACCORDING TO R-ICE REGIME, 1 CYCLE
     Route: 065
     Dates: start: 201812, end: 201901
  19. CYCLOPHOSPHAMIDE/CYCLOPHOSPHAMIDE MONOHYDRATE [Suspect]
     Active Substance: CYCLOPHOSPHAMIDE
     Indication: DIFFUSE LARGE B-CELL LYMPHOMA
     Dosage: 1ST LINE TREATMENT, ACCORDING TO R-CHOP REGIME, 6 CYCLES
     Route: 065
     Dates: start: 201803, end: 201807
  20. DEXAMETHASONE. [Suspect]
     Active Substance: DEXAMETHASONE
     Indication: DIFFUSE LARGE B-CELL LYMPHOMA
     Dosage: 3RD LINE TREATMENT, ACCORDING TO R-DHAP, 2 CYCLES
     Route: 065
     Dates: start: 20190111, end: 20190201

REACTIONS (2)
  - Neuropathy peripheral [Unknown]
  - Fatigue [Unknown]
